FAERS Safety Report 5211879-8 (Version None)
Quarter: 2007Q1

REPORT INFORMATION
  Report Type: 
  Country: None (occurrence: None)
  Receive Date: 20070116
  Receipt Date: 20070105
  Transmission Date: 20070707
  Serious: Yes (Hospitalization, Other)
  Sender: FDA-Public Use
  Company Number: HQWYE616205JAN07

PATIENT
  Age: 78 Year
  Sex: Male

DRUGS (10)
  1. CORDARONE [Suspect]
     Dosage: 200 MG 1X PER 1 DAY ORAL
     Route: 048
     Dates: start: 20061008, end: 20061101
  2. COUMADIN [Suspect]
     Dosage: 5 MG 1X PER 1 DAY ORAL
     Route: 048
     Dates: start: 20061011, end: 20061101
  3. PERINDOPRIL ERBUMINE [Suspect]
     Dosage: 4 MG 1X PER 1 DAY ORAL
     Route: 048
     Dates: start: 20061005, end: 20061101
  4. KENZEN (CANDESARTAN CILEXETIL, ) [Suspect]
     Dosage: 8 MG 1X PER 1 DAY ORAL
     Route: 048
     Dates: start: 20061101, end: 20061108
  5. SIMVASTATIN [Suspect]
     Dosage: UNSPECIFIED ORAL
     Route: 048
     Dates: start: 20061014, end: 20061108
  6. ALLOPURINOL [Suspect]
     Dosage: 300 MG 1X PER 1 DAY ORAL
     Route: 048
     Dates: start: 20060101, end: 20061113
  7. LASIX [Concomitant]
  8. KARDEGIC (ACETYLSALICYLATE LYSINE) [Concomitant]
  9. BISOPROLOL FUMARATE [Concomitant]
  10. PREDNISONE [Concomitant]

REACTIONS (7)
  - DEHYDRATION [None]
  - DIARRHOEA [None]
  - EOSINOPHILIA [None]
  - INTERNATIONAL NORMALISED RATIO INCREASED [None]
  - PRURITUS [None]
  - RENAL FAILURE ACUTE [None]
  - SKIN LESION [None]
